FAERS Safety Report 15813993 (Version 4)
Quarter: 2019Q1

REPORT INFORMATION
  Report Type: Spontaneous
  Country: DK (occurrence: DK)
  Receive Date: 20190111
  Receipt Date: 20190311
  Transmission Date: 20190417
  Serious: Yes (Hospitalization, Other)
  Sender: FDA-Public Use
  Company Number: DK-JNJFOC-20190110936

PATIENT
  Age: 28 Year
  Sex: Male

DRUGS (5)
  1. FLUTICASONE PROPIONATE W/SALMETEROL [Interacting]
     Active Substance: FLUTICASONE PROPIONATE\SALMETEROL XINAFOATE
     Indication: CHILDHOOD ASTHMA
     Route: 055
  2. CIPROFLOXACIN. [Suspect]
     Active Substance: CIPROFLOXACIN
     Indication: ASPERGILLUS INFECTION
     Route: 065
  3. FLUTICASONE PROPIONATE W/SALMETEROL [Interacting]
     Active Substance: FLUTICASONE PROPIONATE\SALMETEROL XINAFOATE
     Indication: CHILDHOOD ASTHMA
     Dosage: STEADILY INCREASED OVER A PERIOD OF 2 YEARS
     Route: 055
  4. COLISTIN [Suspect]
     Active Substance: COLISTIN
     Indication: PSEUDOMONAS INFECTION
     Route: 055
  5. ITRACONAZOLE. [Suspect]
     Active Substance: ITRACONAZOLE
     Indication: PRODUCT USED FOR UNKNOWN INDICATION
     Route: 048

REACTIONS (10)
  - Lung infection [Unknown]
  - Drug interaction [Recovered/Resolved]
  - Aspergillus infection [Unknown]
  - Immunodeficiency [Unknown]
  - Pseudomonas infection [Unknown]
  - Hypersensitivity [Unknown]
  - Mycobacterial infection [Recovered/Resolved]
  - Secondary adrenocortical insufficiency [Unknown]
  - Burkholderia cepacia complex infection [Unknown]
  - Asthma [Unknown]

NARRATIVE: CASE EVENT DATE: 2014
